FAERS Safety Report 6571663-X (Version None)
Quarter: 2010Q1

REPORT INFORMATION
  Report Type: 
  Country: None (occurrence: None)
  Receive Date: 20100205
  Receipt Date: 20100127
  Transmission Date: 20100710
  Serious: Yes (Other)
  Sender: FDA-Public Use
  Company Number: PHHY2010JP04749

PATIENT
  Age: 76 Year
  Sex: Female

DRUGS (2)
  1. AREDIA [Suspect]
     Dosage: UNK
     Route: 042
     Dates: start: 20060101, end: 20060901
  2. ZOMETA [Suspect]
     Dosage: UNK
     Route: 042
     Dates: start: 20061001

REACTIONS (1)
  - OSTEONECROSIS [None]
